FAERS Safety Report 19399057 (Version 1)
Quarter: 2021Q2

REPORT INFORMATION
  Report Type: Spontaneous
  Country: US (occurrence: US)
  Receive Date: 20210610
  Receipt Date: 20210610
  Transmission Date: 20210717
  Serious: Yes (Hospitalization)
  Sender: FDA-Public Use
  Company Number: None

PATIENT
  Age: 57 Year
  Sex: Male
  Weight: 92 kg

DRUGS (2)
  1. RITUXIMAB (MOAB C2B8 ANTI CD20, CHIMERIC) [Suspect]
     Active Substance: RITUXIMAB
     Dates: end: 20210527
  2. CYTARABINE. [Suspect]
     Active Substance: CYTARABINE
     Dates: end: 20210529

REACTIONS (9)
  - Body temperature increased [None]
  - White blood cell count decreased [None]
  - Fatigue [None]
  - Blood creatinine increased [None]
  - Decreased appetite [None]
  - Platelet count decreased [None]
  - Neutrophil count decreased [None]
  - Lung infiltration [None]
  - Blood bilirubin increased [None]

NARRATIVE: CASE EVENT DATE: 20210606
